FAERS Safety Report 20414751 (Version 1)
Quarter: 2022Q1

REPORT INFORMATION
  Report Type: Spontaneous
  Country: US (occurrence: US)
  Receive Date: 20220202
  Receipt Date: 20220202
  Transmission Date: 20220424
  Serious: No
  Sender: FDA-Public Use
  Company Number: US-GLENMARK PHARMACEUTICALS-2021GMK069525

PATIENT

DRUGS (1)
  1. IMIQUIMOD [Suspect]
     Active Substance: IMIQUIMOD
     Indication: Localised infection
     Dosage: UNK, BID
     Route: 061
     Dates: start: 2021

REACTIONS (2)
  - Product use in unapproved indication [Unknown]
  - Therapeutic product effect delayed [Unknown]
